FAERS Safety Report 19911426 (Version 1)
Quarter: 2021Q4

REPORT INFORMATION
  Report Type: Spontaneous
  Country: US (occurrence: US)
  Receive Date: 20211004
  Receipt Date: 20211004
  Transmission Date: 20220303
  Serious: No
  Sender: FDA-Public Use
  Company Number: US-AMGEN-USASP2021149830

PATIENT
  Age: 54 Year
  Sex: Female
  Weight: 45.81 kg

DRUGS (1)
  1. EVENITY [Suspect]
     Active Substance: ROMOSOZUMAB-AQQG
     Indication: Osteoporosis postmenopausal
     Dosage: UNK, UNK
     Route: 065

REACTIONS (6)
  - Peripheral swelling [Not Recovered/Not Resolved]
  - Sleep disorder due to a general medical condition [Unknown]
  - Oedema peripheral [Unknown]
  - Arthralgia [Unknown]
  - Dizziness [Unknown]
  - Hypocalcaemia [Not Recovered/Not Resolved]
